FAERS Safety Report 8056469-7 (Version None)
Quarter: 2012Q1

REPORT INFORMATION
  Report Type: 
  Country: None (occurrence: None)
  Receive Date: 20120119
  Receipt Date: 20110801
  Transmission Date: 20120608
  Serious: Yes (Hospitalization)
  Sender: FDA-Public Use
  Company Number: US-SANOFI-AVENTIS-2011SA038157

PATIENT
  Age: 77 Year
  Sex: Female

DRUGS (8)
  1. BACLOFEN [Concomitant]
     Route: 048
     Dates: start: 20100825
  2. LEVOTHYROXINE SODIUM [Concomitant]
     Indication: HYPOTHYROIDISM
     Route: 048
     Dates: start: 20061101
  3. MORPHINE [Concomitant]
     Route: 048
     Dates: start: 20100101
  4. LASIX [Suspect]
     Indication: OEDEMA PERIPHERAL
     Route: 048
     Dates: start: 20090316, end: 20110502
  5. INVESTIGATIONAL DRUG [Suspect]
     Dosage: 4 WEEKS ON 4 WEEKS OFF
     Route: 048
  6. HYDROCHLOROTHIAZIDE [Suspect]
     Indication: DIURETIC THERAPY
     Route: 048
     Dates: start: 20100825, end: 20110502
  7. INVESTIGATIONAL DRUG [Suspect]
     Indication: RENAL CANCER
     Dosage: 4 WEEKS ON 4 WEEKS OFF
     Route: 048
     Dates: start: 20070313
  8. ACTONEL [Concomitant]
     Indication: OSTEOPOROSIS
     Route: 048
     Dates: start: 20090101

REACTIONS (1)
  - DEHYDRATION [None]
